FAERS Safety Report 15167106 (Version 1)
Quarter: 2018Q3

REPORT INFORMATION
  Report Type: Spontaneous
  Country: US (occurrence: US)
  Receive Date: 20180719
  Receipt Date: 20180719
  Transmission Date: 20181010
  Serious: Yes (Hospitalization)
  Sender: FDA-Public Use
  Company Number: US-ELI_LILLY_AND_COMPANY-US201807006684

PATIENT
  Age: 60 Year
  Sex: Female

DRUGS (2)
  1. HUMALOG [Suspect]
     Active Substance: INSULIN LISPRO
     Dosage: 45 U, WITH MEALS
     Route: 065
     Dates: start: 2016
  2. HUMALOG [Suspect]
     Active Substance: INSULIN LISPRO
     Indication: PRODUCT USED FOR UNKNOWN INDICATION
     Dosage: 45 U, WITH MEALS
     Route: 065
     Dates: start: 2016

REACTIONS (4)
  - Injection site mass [Recovering/Resolving]
  - Uterine cancer [Recovering/Resolving]
  - Injection site swelling [Recovering/Resolving]
  - Procedural pain [Unknown]

NARRATIVE: CASE EVENT DATE: 201806
